FAERS Safety Report 5518769-1 (Version None)
Quarter: 2007Q4

REPORT INFORMATION
  Report Type: 
  Country: None (occurrence: None)
  Receive Date: 20071115
  Receipt Date: 20071101
  Transmission Date: 20080405
  Serious: Yes (Other)
  Sender: FDA-Public Use
  Company Number: GB-RANBAXY-2007RR-11218

PATIENT

DRUGS (2)
  1. GABAPENTIN BASICS B 600MG FILMTABLETTEN [Suspect]
  2. KEPPRA [Concomitant]

REACTIONS (1)
  - OSTEOPENIA [None]
